FAERS Safety Report 8856570 (Version 1)
Quarter: 2012Q4

REPORT INFORMATION
  Report Type: 
  Country: US (occurrence: US)
  Receive Date: 20121023
  Receipt Date: 20121023
  Transmission Date: 20130627
  Serious: No
  Sender: FDA-Public Use
  Company Number: US-AMGEN-USASP2012057388

PATIENT
  Sex: Female

DRUGS (10)
  1. ENBREL [Suspect]
     Indication: RHEUMATOID ARTHRITIS
     Dosage: UNK
  2. SIMPONI [Concomitant]
     Dosage: 50 mg, qmo
     Route: 058
  3. PLAVIX [Concomitant]
     Dosage: 300 mg, UNK
  4. DIOVAN [Concomitant]
     Dosage: 40 UNK, UNK
  5. ALLEGRA [Concomitant]
     Dosage: 30 mg, UNK
  6. VITAMIN D /00107901/ [Concomitant]
     Dosage: 400 UNK, UNK
  7. MULTIVITAMINS, PLAIN [Concomitant]
     Dosage: UNK
  8. VITAMIN B COMPLEX [Concomitant]
     Dosage: UNK
  9. OMEGA 3                            /01334101/ [Concomitant]
     Dosage: 340 mg, UNK
  10. CALCIUM [Concomitant]
     Dosage: 600 UNK, UNK

REACTIONS (1)
  - Therapeutic response decreased [Unknown]
